FAERS Safety Report 5535100-6 (Version None)
Quarter: 2007Q4

REPORT INFORMATION
  Report Type: 
  Country: None (occurrence: None)
  Receive Date: 20071203
  Receipt Date: 20071116
  Transmission Date: 20080405
  Serious: Yes (Other)
  Sender: FDA-Public Use
  Company Number: 2007BI006381

PATIENT
  Age: 55 Year
  Sex: Female

DRUGS (2)
  1. NATALIZUMAB (NATALIZUMAB) [Suspect]
     Indication: DRUG USE FOR UNKNOWN INDICATION
     Dates: start: 20060825
  2. NATALIZUMAB (NATALIZUMAB) [Suspect]
     Indication: DRUG USE FOR UNKNOWN INDICATION
     Dates: start: 20070803

REACTIONS (2)
  - EOSINOPHIL COUNT ABNORMAL [None]
  - NEUTROPENIA [None]
